FAERS Safety Report 12605104 (Version 5)
Quarter: 2016Q4

REPORT INFORMATION
  Report Type: Spontaneous
  Country: US (occurrence: US)
  Receive Date: 20160728
  Receipt Date: 20161017
  Transmission Date: 20170207
  Serious: Yes (Death, Other)
  Sender: FDA-Public Use
  Company Number: US-TAKEDA-2016MPI006589

PATIENT
  Age: 78 Year
  Sex: Female

DRUGS (22)
  1. NINLARO [Suspect]
     Active Substance: IXAZOMIB
     Indication: PLASMA CELL MYELOMA
     Dosage: 2.3 MG, UNK
     Route: 048
     Dates: start: 20160620, end: 20160722
  2. DOXYCYCLINE HYCLATE. [Concomitant]
     Active Substance: DOXYCYCLINE HYCLATE
  3. FERREX 150 [Concomitant]
  4. LYRICA [Concomitant]
     Active Substance: PREGABALIN
  5. PROCRIT [Concomitant]
     Active Substance: ERYTHROPOIETIN
  6. TAMSULOSIN HCL [Concomitant]
     Active Substance: TAMSULOSIN
  7. CLOTRIMAZOLE AF [Concomitant]
  8. MAGOX 400 [Concomitant]
  9. NEXIUM [Concomitant]
     Active Substance: ESOMEPRAZOLE MAGNESIUM
  10. TORSEMIDE. [Concomitant]
     Active Substance: TORSEMIDE
  11. VITAMIN B12 [Concomitant]
     Active Substance: CYANOCOBALAMIN
  12. VITAMIN D                          /00107901/ [Concomitant]
     Active Substance: ERGOCALCIFEROL
  13. ZOCOR [Concomitant]
     Active Substance: SIMVASTATIN
  14. LEXAPRO [Concomitant]
     Active Substance: ESCITALOPRAM OXALATE
  15. ROBITUSSIN CHEST CONGESTION [Concomitant]
     Active Substance: GUAIFENESIN
  16. SINGULAIR [Concomitant]
     Active Substance: MONTELUKAST SODIUM
  17. MIRALAX [Concomitant]
     Active Substance: POLYETHYLENE GLYCOL 3350
  18. ASPIRIN LOW DOSE [Concomitant]
     Active Substance: ASPIRIN
  19. DOCUSATE SODIUM. [Concomitant]
     Active Substance: DOCUSATE SODIUM
  20. METOPROLOL TARTRATE. [Concomitant]
     Active Substance: METOPROLOL TARTRATE
  21. CALCIUM CARBONATE ANTACID [Concomitant]
  22. LANTUS SOLOSTAR [Concomitant]
     Active Substance: INSULIN GLARGINE

REACTIONS (4)
  - Pain [Unknown]
  - Fatigue [Unknown]
  - Anaemia [Unknown]
  - Plasma cell myeloma [Fatal]

NARRATIVE: CASE EVENT DATE: 20160806
